FAERS Safety Report 4473600-0 (Version None)
Quarter: 2004Q4

REPORT INFORMATION
  Report Type: 
  Country: None (occurrence: None)
  Receive Date: 20041013
  Receipt Date: 20041004
  Transmission Date: 20050328
  Serious: Yes (Death, Hospitalization)
  Sender: FDA-Public Use
  Company Number: AU-MERCK-0410AUS00043

PATIENT
  Age: 93 Year
  Sex: Female

DRUGS (4)
  1. [THERAPY UNSPECIFIED] [Concomitant]
     Route: 065
  2. DIGOXIN [Concomitant]
     Indication: HEART RATE DECREASED
     Route: 065
  3. VIOXX [Suspect]
     Indication: ARTHRITIS
     Route: 048
     Dates: start: 20020122
  4. VIOXX [Suspect]
     Route: 048
     Dates: start: 20020427

REACTIONS (3)
  - CEREBROVASCULAR ACCIDENT [None]
  - DEATH [None]
  - MALAISE [None]
